FAERS Safety Report 8308025-0 (Version None)
Quarter: 2012Q2

REPORT INFORMATION
  Report Type: 
  Country: None (occurrence: None)
  Receive Date: 20120424
  Receipt Date: 20120409
  Transmission Date: 20120825
  Serious: Yes (Other)
  Sender: FDA-Public Use
  Company Number: IT-ARROW GEN-2012-06460

PATIENT
  Age: 56 Year
  Sex: Female

DRUGS (2)
  1. ANASTROZOLE [Suspect]
     Indication: BREAST CANCER
     Dosage: UNK UNK, UNK
     Route: 065
     Dates: start: 20050101, end: 20090801
  2. TAMOXIFEN CITRATE [Suspect]
     Indication: BREAST CANCER
     Dosage: UNK
     Route: 065
     Dates: start: 20090801

REACTIONS (2)
  - RHEUMATOID ARTHRITIS [None]
  - ARTHRALGIA [None]
